FAERS Safety Report 17940263 (Version 1)
Quarter: 2020Q2

REPORT INFORMATION
  Report Type: Spontaneous
  Country: DE (occurrence: DE)
  Receive Date: 20200624
  Receipt Date: 20200624
  Transmission Date: 20200714
  Serious: Yes (Hospitalization)
  Sender: FDA-Public Use
  Company Number: DE-MYLANLABS-2020M1057563

PATIENT
  Age: 92 Year
  Sex: Male
  Weight: 85 kg

DRUGS (7)
  1. ELIQUIS [Concomitant]
     Active Substance: APIXABAN
     Dosage: 2.5 MILLIGRAM, BID 1-0-1-0
  2. IRENAT [Concomitant]
     Active Substance: SODIUM PERCHLORATE
     Dosage: 300 MILLIGRAM PER MILLILITRE, 20-20-20-0, DROPS
  3. TORASEMID [Concomitant]
     Active Substance: TORSEMIDE
     Dosage: 20 MILLIGRAM, BID  1-1-0-0
  4. BISOPROLOL [Suspect]
     Active Substance: BISOPROLOL
     Dosage: 5 MILLIGRAM, QD 1-0-0-0
  5. HYDROCHLOROTHIAZIDE W/RAMIPRIL [Concomitant]
     Active Substance: HYDROCHLOROTHIAZIDE\RAMIPRIL
     Dosage: 12.5/2.5 MG, 1-1-0-0
  6. BISOPROLOL [Suspect]
     Active Substance: BISOPROLOL
     Indication: PRODUCT USED FOR UNKNOWN INDICATION
     Dosage: 2.5 MILLIGRAM, QD 0-0-1-0
  7. TRENANTONE [Concomitant]
     Active Substance: LEUPROLIDE ACETATE
     Dosage: UNK

REACTIONS (4)
  - Asthenia [Unknown]
  - Oedema peripheral [Unknown]
  - Troponin increased [Unknown]
  - Arrhythmia [Unknown]
